FAERS Safety Report 5450951-4 (Version None)
Quarter: 2007Q3

REPORT INFORMATION
  Report Type: 
  Country: None (occurrence: None)
  Receive Date: 20070911
  Receipt Date: 20070911
  Transmission Date: 20080115
  Serious: Yes (Life-Threatening, Hospitalization)
  Sender: FDA-Public Use
  Company Number: None

PATIENT
  Age: 65 Year
  Sex: Female

DRUGS (7)
  1. WARFARIN SODIUM [Suspect]
     Dosage: 5 MG DAILY PO
     Route: 048
  2. GLUCOVANCE [Concomitant]
  3. TOPROL-XL [Concomitant]
  4. ASPIRIN [Concomitant]
  5. LISINOPRIL [Concomitant]
  6. IRON [Concomitant]
  7. SIMVASTATIN [Concomitant]

REACTIONS (2)
  - SINUSITIS [None]
  - SUBDURAL HAEMATOMA [None]
